FAERS Safety Report 9209448 (Version 1)
Quarter: 2013Q1

REPORT INFORMATION
  Report Type: Spontaneous
  Country: US (occurrence: None)
  Receive Date: 20120727
  Receipt Date: 20120727
  Transmission Date: 20140127
  Serious: Yes (Death, Other)
  Sender: FDA-Public Use
  Company Number: 2012-00947

PATIENT
  Age: 69 Year
  Sex: Male

DRUGS (9)
  1. METFORMIN (UNKNOWN) [Suspect]
     Indication: PRODUCT USED FOR UNKNOWN INDICATION
  2. CLOPIDOGREL [Concomitant]
  3. GABAPENTIN(UNKNOWN) [Concomitant]
  4. GLIPIZIDE (UNKNOWN) [Concomitant]
  5. LISINOPRIL (UNKNOWN) [Concomitant]
  6. METOPROLOL( UNKNOWN) [Concomitant]
  7. OMEPRAZOLE (UNKNOWN) [Concomitant]
  8. ROSUVASTATIN  (UNKNOWN) [Concomitant]
  9. SERTRALINE (UNKNOWN) (SERTRALINE) [Concomitant]

REACTIONS (5)
  - Lactic acidosis [None]
  - Abdominal pain [None]
  - Nausea [None]
  - Vomiting [None]
  - Hyperhidrosis [None]
